FAERS Safety Report 17523039 (Version 2)
Quarter: 2021Q4

REPORT INFORMATION
  Report Type: Spontaneous
  Country: US (occurrence: US)
  Receive Date: 20200310
  Receipt Date: 20211122
  Transmission Date: 20220303
  Serious: Yes (Other)
  Sender: FDA-Public Use
  Company Number: US-TAKEDA-2020TUS013427

PATIENT

DRUGS (7)
  1. DEXILANT [Suspect]
     Active Substance: DEXLANSOPRAZOLE
     Indication: Gastrooesophageal reflux disease
     Dosage: 60 MILLIGRAM
     Route: 048
     Dates: start: 2013, end: 2018
  2. PRILOSEC [Suspect]
     Active Substance: OMEPRAZOLE MAGNESIUM
     Indication: Gastrooesophageal reflux disease
     Dosage: 40 MILLIGRAM
     Route: 048
     Dates: start: 2001, end: 2009
  3. NEXIUM [Suspect]
     Active Substance: ESOMEPRAZOLE MAGNESIUM
     Indication: Gastrooesophageal reflux disease
     Dosage: 40 MILLIGRAM
     Route: 048
     Dates: start: 2002, end: 2009
  4. LOSARTAN [Concomitant]
     Active Substance: LOSARTAN
     Indication: Hypertension
     Dosage: UNK
     Dates: start: 2015, end: 2018
  5. ATORVASTATIN [Concomitant]
     Active Substance: ATORVASTATIN
     Indication: Blood cholesterol
     Dosage: UNK
     Dates: start: 2016, end: 2018
  6. GABAPENTIN [Concomitant]
     Active Substance: GABAPENTIN
     Indication: Pain
     Dosage: UNK
     Dates: start: 2016, end: 2018
  7. CARVEDILOL [Concomitant]
     Active Substance: CARVEDILOL
     Indication: Hypertension
     Dosage: UNK
     Dates: start: 2016, end: 2018

REACTIONS (1)
  - Chronic kidney disease [Not Recovered/Not Resolved]
